FAERS Safety Report 8609261 (Version 3)
Quarter: 2012Q4

REPORT INFORMATION
  Report Type: 
  Country: GB (occurrence: GB)
  Receive Date: 20120611
  Receipt Date: 20121022
  Transmission Date: 20130627
  Serious: Yes (Hospitalization, Other)
  Sender: FDA-Public Use
  Company Number: PHHY2012GB048831

PATIENT
  Age: 76 Year
  Sex: Male

DRUGS (6)
  1. DICLOFENAC [Suspect]
     Indication: OSTEOARTHRITIS
     Dosage: 50 mg, TID
     Route: 048
  2. SIMVASTATIN [Suspect]
     Indication: HYPERCHOLESTEROLAEMIA
     Dosage: 40 mg, QD
     Route: 048
  3. CINNARIZINE [Concomitant]
  4. GLUCOSAMINE [Concomitant]
  5. SILDENAFIL [Concomitant]
  6. SILDENAFIL CITRATE [Concomitant]

REACTIONS (7)
  - Rhabdomyolysis [Recovered/Resolved]
  - Myalgia [Unknown]
  - Blood creatine phosphokinase increased [Recovered/Resolved]
  - Myopathy [Recovered/Resolved]
  - Liver function test abnormal [Unknown]
  - Renal failure acute [Recovered/Resolved]
  - Blood creatinine increased [Recovered/Resolved]
